FAERS Safety Report 5787213-1 (Version None)
Quarter: 2008Q2

REPORT INFORMATION
  Report Type: 
  Country: None (occurrence: None)
  Receive Date: 20080625
  Receipt Date: 20070920
  Transmission Date: 20081010
  Serious: No
  Sender: FDA-Public Use
  Company Number: US-ASTRAZENECA-2007UW22255

PATIENT
  Age: 72 Year
  Sex: Female
  Weight: 70.8 kg

DRUGS (4)
  1. PULMICORT RESPULES [Suspect]
     Indication: ASTHMA
     Route: 055
  2. DUONEB [Concomitant]
  3. LOTENSIN [Concomitant]
  4. BLADDER 2 VITAMIN [Concomitant]

REACTIONS (1)
  - WEIGHT INCREASED [None]
